FAERS Safety Report 18202236 (Version 2)
Quarter: 2020Q3

REPORT INFORMATION
  Report Type: Spontaneous
  Country: US (occurrence: US)
  Receive Date: 20200827
  Receipt Date: 20200831
  Transmission Date: 20201103
  Serious: No
  Sender: FDA-Public Use
  Company Number: US-HORIZON-PRO-0199-2020

PATIENT
  Age: 32 Year
  Sex: Female

DRUGS (1)
  1. PROCYSBI [Suspect]
     Active Substance: CYSTEAMINE BITARTRATE
     Indication: CYSTINOSIS
     Dosage: 900MG TWICE A DAY
     Route: 048
     Dates: start: 201606

REACTIONS (2)
  - Vomiting [Unknown]
  - Illness [Unknown]
